FAERS Safety Report 19642726 (Version 1)
Quarter: 2021Q3

REPORT INFORMATION
  Report Type: Spontaneous
  Country: US (occurrence: US)
  Receive Date: 20210730
  Receipt Date: 20210730
  Transmission Date: 20211014
  Serious: No
  Sender: FDA-Public Use
  Company Number: US-SEBELA IRELAND LIMITED-2021SEB00024

PATIENT
  Sex: Female

DRUGS (2)
  1. PEXEVA [Suspect]
     Active Substance: PAROXETINE MESYLATE
     Dosage: 20 MG
  2. PEXEVA [Suspect]
     Active Substance: PAROXETINE MESYLATE
     Dosage: 20 MG

REACTIONS (7)
  - Panic attack [Not Recovered/Not Resolved]
  - Sensory disturbance [Not Recovered/Not Resolved]
  - Antidepressant discontinuation syndrome [Not Recovered/Not Resolved]
  - Product supply issue [Unknown]
  - Product storage error [Unknown]
  - Reaction to colouring [Unknown]
  - Insomnia [Not Recovered/Not Resolved]

NARRATIVE: CASE EVENT DATE: 20210305
